FAERS Safety Report 7155614-5 (Version None)
Quarter: 2010Q4

REPORT INFORMATION
  Report Type: 
  Country: None (occurrence: None)
  Receive Date: 20101214
  Receipt Date: 20091118
  Transmission Date: 20110411
  Serious: No
  Sender: FDA-Public Use
  Company Number: US-AMGEN-KDL375404

PATIENT

DRUGS (11)
  1. ENBREL [Suspect]
     Indication: PRODUCT USED FOR UNKNOWN INDICATION
     Dosage: 50 MG, QWK
     Route: 058
  2. INSULIN LISPRO [Concomitant]
     Dosage: UNK UNK, UNK
  3. NIASPAN [Concomitant]
     Dosage: 500 MG, UNK
  4. TRAMADOL HYDROCHLORIDE [Concomitant]
     Dosage: 50 MG, UNK
  5. LISINOPRIL AND HYDROCHLOROTHIAZIDE [Concomitant]
     Dosage: 20 MG, UNK
  6. METFORMIN [Concomitant]
     Dosage: 1000 MG, UNK
  7. GLIPIZIDE [Concomitant]
     Dosage: 5 MG, UNK
  8. BUPROPION [Concomitant]
     Dosage: 300 MG, UNK
  9. ROSUVASTATIN CALCIUM [Concomitant]
     Dosage: 5 MG, UNK
  10. PREDNISONE [Concomitant]
     Dosage: 5 MG, UNK
  11. ASPIRIN [Concomitant]
     Dosage: 81 MG, UNK

REACTIONS (1)
  - INJECTION SITE HAEMATOMA [None]
